FAERS Safety Report 13289154 (Version 1)
Quarter: 2017Q1

REPORT INFORMATION
  Report Type: Spontaneous
  Country: US (occurrence: US)
  Receive Date: 20170302
  Receipt Date: 20170302
  Transmission Date: 20170428
  Serious: Yes (Other)
  Sender: FDA-Public Use
  Company Number: US-AMGEN-USASP2017029853

PATIENT
  Age: 49 Year
  Sex: Female

DRUGS (1)
  1. PROLIA [Suspect]
     Active Substance: DENOSUMAB
     Indication: OSTEOPOROSIS POSTMENOPAUSAL
     Dosage: UNK
     Route: 065

REACTIONS (9)
  - Somnolence [Unknown]
  - Living in residential institution [Not Recovered/Not Resolved]
  - Back pain [Unknown]
  - Pain in extremity [Unknown]
  - Hospitalisation [Unknown]
  - Blister [Unknown]
  - Swelling face [Unknown]
  - Abasia [Unknown]
  - Peripheral swelling [Unknown]

NARRATIVE: CASE EVENT DATE: 201701
